FAERS Safety Report 9549777 (Version 2)
Quarter: 2013Q3

REPORT INFORMATION
  Report Type: Spontaneous
  Country: US (occurrence: US)
  Receive Date: 20130924
  Receipt Date: 20130924
  Transmission Date: 20140515
  Serious: No
  Sender: FDA-Public Use
  Company Number: US-ALLERGAN-1309427US

PATIENT
  Age: 87 Year
  Sex: Female

DRUGS (7)
  1. LUMIGAN 0.01% [Suspect]
     Indication: GLAUCOMA
     Dosage: 2 GTT, QHS
     Route: 047
  2. ALPHAGAN P [Suspect]
     Indication: GLAUCOMA
     Dosage: 2 GTT, BID
     Route: 047
  3. HTN MEDICATION [Concomitant]
     Indication: HYPERTENSION
     Dosage: UNK
  4. CHOLESTEROL MEDICATION [Concomitant]
     Indication: BLOOD CHOLESTEROL INCREASED
     Dosage: UNK
  5. VAGINAL CORTISONE CREAM [Concomitant]
     Indication: VULVOVAGINAL PRURITUS
     Dosage: UNK
     Dates: start: 201301
  6. THYROID MEDICATION [Concomitant]
     Indication: HYPOTHYROIDISM
     Dosage: UNK
  7. THERATEARS [Concomitant]
     Indication: LACRIMATION INCREASED
     Dosage: UNK UNK, PRN
     Route: 047

REACTIONS (4)
  - Urticaria [Recovered/Resolved]
  - Pruritus generalised [Recovered/Resolved]
  - Intraocular pressure increased [Recovered/Resolved]
  - Inappropriate schedule of drug administration [Unknown]
